FAERS Safety Report 5600858-4 (Version None)
Quarter: 2008Q1

REPORT INFORMATION
  Report Type: 
  Country: None (occurrence: None)
  Receive Date: 20080122
  Receipt Date: 20080122
  Transmission Date: 20080703
  Serious: Yes (Other)
  Sender: FDA-Public Use
  Company Number: None

PATIENT
  Age: 58 Year
  Sex: Male

DRUGS (1)
  1. PERCOCET [Suspect]
     Indication: BACK PAIN
     Dosage: 10/325 TWICE DAILY ORAL
     Route: 048

REACTIONS (3)
  - DRUG HYPERSENSITIVITY [None]
  - NAUSEA [None]
  - RASH ERYTHEMATOUS [None]
